FAERS Safety Report 4389620-0 (Version None)
Quarter: 2004Q3

REPORT INFORMATION
  Report Type: 
  Country: None (occurrence: None)
  Receive Date: 20040702
  Receipt Date: 20040628
  Transmission Date: 20050211
  Serious: Yes (Hospitalization, Other)
  Sender: FDA-Public Use
  Company Number: LB-MERCK-0406USA02465

PATIENT
  Age: 70 Year
  Sex: Female

DRUGS (6)
  1. [THERAPY UNSPECIFIED] [Concomitant]
     Route: 065
  2. ASPIRIN [Concomitant]
     Route: 065
  3. EBASTEL [Concomitant]
     Route: 065
  4. HYZAAR [Suspect]
     Route: 048
  5. ZADITEN [Concomitant]
     Route: 065
  6. ALDACTONE [Concomitant]
     Route: 065

REACTIONS (1)
  - CHRONIC OBSTRUCTIVE AIRWAYS DISEASE [None]
